FAERS Safety Report 13196075 (Version 1)
Quarter: 2017Q1

REPORT INFORMATION
  Report Type: Spontaneous
  Country: US (occurrence: US)
  Receive Date: 20170208
  Receipt Date: 20170208
  Transmission Date: 20170428
  Serious: No
  Sender: FDA-Public Use
  Company Number: US-009507513-1702USA000861

PATIENT
  Age: 27 Year
  Sex: Female
  Weight: 91.16 kg

DRUGS (1)
  1. ETONOGESTREL IMPLANT- UNKNOWN [Suspect]
     Active Substance: ETONOGESTREL
     Indication: CONTRACEPTION
     Dosage: 1 DF, 3 YEAR IMPLANT
     Route: 059

REACTIONS (4)
  - Dizziness [Unknown]
  - Back pain [Unknown]
  - Food craving [Unknown]
  - Abdominal pain lower [Unknown]
